FAERS Safety Report 6154483-X (Version None)
Quarter: 2009Q2

REPORT INFORMATION
  Report Type: 
  Country: None (occurrence: None)
  Receive Date: 20090414
  Receipt Date: 20090407
  Transmission Date: 20091009
  Serious: Yes (Hospitalization, Other)
  Sender: FDA-Public Use
  Company Number: US-ELI_LILLY_AND_COMPANY-US200904001617

PATIENT
  Sex: Female

DRUGS (2)
  1. HUMULIN 70/30 [Suspect]
     Dates: start: 20050101
  2. LASIX [Concomitant]
     Indication: SWELLING

REACTIONS (5)
  - BLOOD PRESSURE INCREASED [None]
  - DEHYDRATION [None]
  - RENAL IMPAIRMENT [None]
  - SWELLING [None]
  - WEIGHT DECREASED [None]
